FAERS Safety Report 23277543 (Version 2)
Quarter: 2023Q4

REPORT INFORMATION
  Report Type: Spontaneous
  Country: JP (occurrence: JP)
  Receive Date: 20231208
  Receipt Date: 20231222
  Transmission Date: 20240109
  Serious: Yes (Hospitalization, Other)
  Sender: FDA-Public Use
  Company Number: JP-JNJFOC-20231074416

PATIENT
  Age: 49 Year
  Sex: Male
  Weight: 79.1 kg

DRUGS (6)
  1. TRABECTEDIN [Suspect]
     Active Substance: TRABECTEDIN
     Indication: Neoplasm malignant
     Dosage: CYCLE 1
     Route: 041
     Dates: start: 20230831
  2. TRABECTEDIN [Suspect]
     Active Substance: TRABECTEDIN
     Dosage: CYCLE 2
     Route: 041
     Dates: start: 20231002
  3. CALCIUM CARBONATE\CHOLECALCIFEROL\MAGNESIUM CARBONATE [Concomitant]
     Active Substance: CALCIUM CARBONATE\CHOLECALCIFEROL\MAGNESIUM CARBONATE
  4. DENOSUMAB [Concomitant]
     Active Substance: DENOSUMAB
  5. VONOPRAZAN FUMARATE [Concomitant]
     Active Substance: VONOPRAZAN FUMARATE
  6. POLAPREZINC [Concomitant]
     Active Substance: POLAPREZINC

REACTIONS (3)
  - Rhabdomyolysis [Recovered/Resolved]
  - Paraneoplastic hypoglycaemia [Recovering/Resolving]
  - Liver disorder [Recovering/Resolving]

NARRATIVE: CASE EVENT DATE: 20230904
